FAERS Safety Report 14946967 (Version 1)
Quarter: 2018Q2

REPORT INFORMATION
  Report Type: Spontaneous
  Country: US (occurrence: US)
  Receive Date: 20180508
  Receipt Date: 20180508
  Transmission Date: 20180711
  Serious: Yes (Other)
  Sender: FDA-Public Use
  Company Number: None

PATIENT
  Age: 89 Year
  Sex: Female
  Weight: 74.25 kg

DRUGS (9)
  1. MSM [Concomitant]
     Active Substance: DIMETHYL SULFONE
  2. CINNAMON. [Concomitant]
     Active Substance: CINNAMON
  3. NIACIN. [Concomitant]
     Active Substance: NIACIN
  4. NORVASC [Concomitant]
     Active Substance: AMLODIPINE BESYLATE
  5. MULTIVITAMINS [Concomitant]
     Active Substance: VITAMINS
  6. FEMARA [Suspect]
     Active Substance: LETROZOLE
     Indication: BREAST CANCER
     Dosage: ?          QUANTITY:30 DF DOSAGE FORM;?
     Route: 048
     Dates: start: 20171101, end: 20180411
  7. SYNTHROID [Concomitant]
     Active Substance: LEVOTHYROXINE SODIUM
  8. BIOTIN [Concomitant]
     Active Substance: BIOTIN
  9. VIT B 12 [Concomitant]

REACTIONS (2)
  - Pain [None]
  - Blindness [None]

NARRATIVE: CASE EVENT DATE: 20180416
